FAERS Safety Report 5512349-X (Version None)
Quarter: 2007Q4

REPORT INFORMATION
  Report Type: 
  Country: None (occurrence: None)
  Receive Date: 20071107
  Receipt Date: 20071022
  Transmission Date: 20080405
  Serious: Yes (Hospitalization)
  Sender: FDA-Public Use
  Company Number: 2007BM000147

PATIENT
  Age: 43 Year
  Sex: Male

DRUGS (4)
  1. PREDNISONE [Suspect]
     Indication: GLOMERULONEPHRITIS MINIMAL LESION
     Dosage: 60 MG QD
     Dates: start: 20020101, end: 20030801
  2. PREDNISONE [Suspect]
     Indication: NEPHROTIC SYNDROME
     Dosage: 60 MG QD
     Dates: start: 20020101, end: 20030801
  3. ORAPRED (PREDNISOLONE SODIUM PHOSPHATE) SOLUTION (EXCEPT SYRUP), 20.2 [Suspect]
  4. CORTICOSTEROIDS, DERMATOLOGICAL PREPARATIONS [Concomitant]

REACTIONS (4)
  - COLITIS ULCERATIVE [None]
  - DRUG RESISTANCE [None]
  - HYPOCHROMIC ANAEMIA [None]
  - REFUSAL OF TREATMENT BY PATIENT [None]
